FAERS Safety Report 8180528-1 (Version None)
Quarter: 2012Q1

REPORT INFORMATION
  Report Type: 
  Country: None (occurrence: None)
  Receive Date: 20120302
  Receipt Date: 20120221
  Transmission Date: 20120608
  Serious: Yes (Other)
  Sender: FDA-Public Use
  Company Number: CY-FRI-1000028374

PATIENT
  Age: 26 Year
  Sex: Male
  Weight: 86 kg

DRUGS (1)
  1. ESCITALOPRAM [Suspect]
     Indication: PANIC ATTACK
     Dosage: OVERDOSE: 40 MG/DAY
     Route: 048
     Dates: start: 20110620, end: 20120128

REACTIONS (2)
  - OVERDOSE [None]
  - BLOOD CREATINE PHOSPHOKINASE INCREASED [None]
